FAERS Safety Report 17722603 (Version 2)
Quarter: 2020Q2

REPORT INFORMATION
  Report Type: Spontaneous
  Country: US (occurrence: US)
  Receive Date: 20200429
  Receipt Date: 20200625
  Transmission Date: 20200714
  Serious: No
  Sender: FDA-Public Use
  Company Number: US-PFIZER INC-2020163397

PATIENT
  Age: 62 Year
  Sex: Female

DRUGS (1)
  1. IBRANCE [Suspect]
     Active Substance: PALBOCICLIB
     Dosage: 1 DF

REACTIONS (5)
  - Depressed mood [Unknown]
  - Tachycardia [Unknown]
  - Mood altered [Unknown]
  - Extra dose administered [Unknown]
  - Depression [Unknown]
